FAERS Safety Report 21330059 (Version 2)
Quarter: 2022Q4

REPORT INFORMATION
  Report Type: Spontaneous
  Country: US (occurrence: US)
  Receive Date: 20220913
  Receipt Date: 20221025
  Transmission Date: 20230113
  Serious: No
  Sender: FDA-Public Use
  Company Number: US-PFIZER INC-202201157152

PATIENT
  Age: 68 Year
  Sex: Female
  Weight: 72 kg

DRUGS (1)
  1. INLYTA [Suspect]
     Active Substance: AXITINIB
     Indication: Renal cancer
     Dosage: 2 DF, 2X/DAY (5MG TABLETS, TAKE TWO TABLETS BY MOUTH TWICE DAILY)
     Route: 048

REACTIONS (1)
  - Neoplasm progression [Unknown]
